FAERS Safety Report 14266501 (Version 1)
Quarter: 2017Q4

REPORT INFORMATION
  Report Type: Spontaneous
  Country: JP (occurrence: JP)
  Receive Date: 20171210
  Receipt Date: 20171210
  Transmission Date: 20180321
  Serious: Yes (Other)
  Sender: FDA-Public Use
  Company Number: JP-ROCHE-2031736

PATIENT
  Age: 50 Year
  Sex: Female
  Weight: 41 kg

DRUGS (2)
  1. PACLITAXEL. [Concomitant]
     Active Substance: PACLITAXEL
     Indication: BREAST CANCER
     Dosage: 3 DAYS ADMINISTRATION FOLLOWED BY 1 DAYS REST?THE FRACTIONATION DOSE FREQUENCY IS UNCERTAIN. ?DOSE
     Route: 041
     Dates: start: 20170915
  2. AVASTIN [Suspect]
     Active Substance: BEVACIZUMAB
     Indication: BREAST CANCER
     Route: 041
     Dates: start: 20170915

REACTIONS (4)
  - Skin necrosis [Recovering/Resolving]
  - Pseudomonas infection [Unknown]
  - Skin ulcer [Not Recovered/Not Resolved]
  - Skin erosion [Unknown]

NARRATIVE: CASE EVENT DATE: 20170915
